FAERS Safety Report 6172771-8 (Version None)
Quarter: 2009Q2

REPORT INFORMATION
  Report Type: 
  Country: None (occurrence: None)
  Receive Date: 20090430
  Receipt Date: 20090420
  Transmission Date: 20091009
  Serious: Yes (Life-Threatening, Hospitalization)
  Sender: FDA-Public Use
  Company Number: CA-SANOFI-SYNTHELABO-D01200902308

PATIENT
  Sex: Female
  Weight: 74.8 kg

DRUGS (7)
  1. CLOPIDOGREL [Suspect]
     Indication: ACUTE CORONARY SYNDROME
     Dosage: 300 MG (+PLACEBO) D1 FOLLOWED BY 75 MG (+PLACEBO) D2 TO D7; 75 MG FROM D8 TO 30
     Route: 048
  2. LIPITOR [Concomitant]
  3. METOPROLOL TARTRATE [Concomitant]
  4. FONDAPARINUX [Concomitant]
  5. HEPARIN [Concomitant]
  6. ASA HIGH DOSE [Concomitant]
     Indication: ACUTE CORONARY SYNDROME
     Dosage: AT LEAST 300 MG D1; 300-325 MG FROM D2 TO D30
     Route: 048
     Dates: start: 20090309
  7. CLOPIDOGREL [Suspect]
     Indication: ACUTE CORONARY SYNDROME
     Dosage: 600 MG LD D1 FOLLOWED BY 150 MG FROM D2 TO D7; 75 MG FROM D8 TO 30
     Route: 048
     Dates: start: 20090309

REACTIONS (1)
  - CARDIAC TAMPONADE [None]
